FAERS Safety Report 5175264-X (Version None)
Quarter: 2006Q4

REPORT INFORMATION
  Report Type: 
  Country: None (occurrence: None)
  Receive Date: 20061211
  Receipt Date: 20061211
  Transmission Date: 20070319
  Serious: Yes (Hospitalization)
  Sender: FDA-Public Use
  Company Number: None

PATIENT
  Age: 43 Year
  Sex: Female
  Weight: 79.3795 kg

DRUGS (1)
  1. OXYCONTIN [Suspect]
     Indication: PANCREATITIS CHRONIC
     Dosage: 40 MG 1 PO 4 HRS EVERYDAY
     Route: 048

REACTIONS (1)
  - DRUG HYPERSENSITIVITY [None]
